FAERS Safety Report 5725871-8 (Version None)
Quarter: 2008Q2

REPORT INFORMATION
  Report Type: 
  Country: None (occurrence: None)
  Receive Date: 20080430
  Receipt Date: 20071210
  Transmission Date: 20081010
  Serious: Yes (Other)
  Sender: FDA-Public Use
  Company Number: 2008010234

PATIENT
  Sex: Female

DRUGS (2)
  1. BENADRYL [Suspect]
     Indication: ARTHROPOD BITE
     Dosage: ORAL
     Route: 048
     Dates: start: 20070101, end: 20070101
  2. MEDROL [Suspect]
     Indication: ARTHROPOD BITE
     Dosage: 4 MG, ORAL
     Route: 048
     Dates: start: 20070904, end: 20070916

REACTIONS (8)
  - BLOOD GLUCOSE DECREASED [None]
  - CATARACT [None]
  - DEPRESSION [None]
  - DIZZINESS [None]
  - FORMICATION [None]
  - THIRST [None]
  - TYPE 2 DIABETES MELLITUS [None]
  - WEIGHT DECREASED [None]
